FAERS Safety Report 22380523 (Version 1)
Quarter: 2023Q2

REPORT INFORMATION
  Report Type: Spontaneous
  Country: CA (occurrence: CA)
  Receive Date: 20230529
  Receipt Date: 20230529
  Transmission Date: 20230722
  Serious: Yes (Other)
  Sender: FDA-Public Use
  Company Number: CA-HLS-202301197

PATIENT
  Age: 48 Year
  Sex: Female
  Weight: 69 kg

DRUGS (6)
  1. ABILIFY [Concomitant]
     Active Substance: ARIPIPRAZOLE
     Dosage: AMOUNT: 10 MILLIGRAM?TABLETS DOSAGE FORM
     Route: 065
  2. CLOZAPINE [Suspect]
     Active Substance: CLOZAPINE
     Indication: Schizoaffective disorder bipolar type
     Dosage: 1 EVERY 1 DAYS?AMOUNT: 125 MILLIGRAM?TABLETS DOSAGE FORM?THERAPY DURATION: 2 DAYS
     Route: 048
  3. CLOZAPINE [Suspect]
     Active Substance: CLOZAPINE
     Indication: Schizoaffective disorder bipolar type
     Dosage: THERAPY DURATION: -205 UNITS NOT SPECIFIED
     Route: 065
  4. CONCERTA [Concomitant]
     Active Substance: METHYLPHENIDATE HYDROCHLORIDE
     Dosage: 1 EVERY 1 DAYS?AMOUNT: 72 MILLIGRAM?TABLET (EXTENDED-RELEASE) DOSAGE FORM
     Route: 065
  5. METFORMIN [Concomitant]
     Active Substance: METFORMIN HYDROCHLORIDE
     Dosage: AMOUNT: 800 MILLIGRAM
     Route: 065
  6. DIVALPROEX SODIUM [Concomitant]
     Active Substance: DIVALPROEX SODIUM
     Dosage: 1 EVERY 1 DAYS?AMOUNT: 875 MILLIGRAM
     Route: 065

REACTIONS (11)
  - Asthenia [Unknown]
  - Blood pressure decreased [Unknown]
  - Chest discomfort [Unknown]
  - Chills [Unknown]
  - C-reactive protein increased [Unknown]
  - Dizziness [Unknown]
  - Myalgia [Unknown]
  - Night sweats [Unknown]
  - Oedema peripheral [Unknown]
  - Off label use [Unknown]
  - Pyrexia [Unknown]
